FAERS Safety Report 20901060 (Version 2)
Quarter: 2022Q3

REPORT INFORMATION
  Report Type: Spontaneous
  Country: US (occurrence: US)
  Receive Date: 20220601
  Receipt Date: 20220719
  Transmission Date: 20221027
  Serious: Yes (Hospitalization, Other)
  Sender: FDA-Public Use
  Company Number: US-BRISTOL-MYERS SQUIBB COMPANY-2022-045892

PATIENT
  Age: 72 Year
  Sex: Male
  Weight: 83.6 kg

DRUGS (2)
  1. REVLIMID [Suspect]
     Active Substance: LENALIDOMIDE
     Indication: Plasma cell myeloma
     Dosage: D1-21 Q28 DAYS
     Route: 048
     Dates: start: 20211031
  2. REVLIMID [Suspect]
     Active Substance: LENALIDOMIDE
     Indication: Plasma cell myeloma
     Dosage: DAY 1-21 Q 28 DAYS
     Route: 048
     Dates: start: 20211031

REACTIONS (8)
  - Kidney infection [Unknown]
  - Oedema peripheral [Unknown]
  - Pneumonia [Recovering/Resolving]
  - Sepsis [Recovering/Resolving]
  - Atrial fibrillation [Recovering/Resolving]
  - Acute kidney injury [Recovering/Resolving]
  - Anaemia [Recovering/Resolving]
  - Cardiac failure congestive [Recovering/Resolving]
